FAERS Safety Report 16014357 (Version 1)
Quarter: 2019Q1

REPORT INFORMATION
  Report Type: Spontaneous
  Country: CA (occurrence: CA)
  Receive Date: 20190227
  Receipt Date: 20190227
  Transmission Date: 20190418
  Serious: Yes (Death, Other)
  Sender: FDA-Public Use
  Company Number: CA-GILEAD-2019-0389377

PATIENT
  Age: 38 Year
  Sex: Male

DRUGS (6)
  1. HARVONI [Suspect]
     Active Substance: LEDIPASVIR\SOFOSBUVIR
     Indication: HEPATITIS C
     Dosage: UNK
     Route: 048
     Dates: start: 20190107
  2. BISACODYL. [Concomitant]
     Active Substance: BISACODYL
  3. TYLENOL WITH CODEINE [Concomitant]
     Active Substance: ACETAMINOPHEN\CODEINE PHOSPHATE
  4. GRAVOL [Concomitant]
     Active Substance: DIMENHYDRINATE
  5. MYRBETRIQ [Concomitant]
     Active Substance: MIRABEGRON
  6. PREGABALIN. [Concomitant]
     Active Substance: PREGABALIN

REACTIONS (1)
  - Death [Fatal]

NARRATIVE: CASE EVENT DATE: 20190121
